FAERS Safety Report 5875955-9 (Version None)
Quarter: 2008Q3

REPORT INFORMATION
  Report Type: 
  Country: None (occurrence: None)
  Receive Date: 20080905
  Receipt Date: 20080822
  Transmission Date: 20090109
  Serious: Yes (Other)
  Sender: FDA-Public Use
  Company Number: TRP_05866_2008

PATIENT
  Sex: Male

DRUGS (4)
  1. AMOHOCIL / AMPHOTERICIAN B CHOLESTERYLSULFATE COMPLEX FOR INJECTION [Suspect]
     Indication: PNEUMONIA FUNGAL
     Dosage: (DF INTRAVENOUS (NOT OTHERWISE SPECIFIED))
     Route: 036
     Dates: start: 20080716, end: 20080717
  2. PURINETHOL [Concomitant]
  3. SINERSUL [Concomitant]
  4. ROJAZOL [Concomitant]

REACTIONS (3)
  - CHILLS [None]
  - MALAISE [None]
  - PYREXIA [None]
